FAERS Safety Report 16607867 (Version 2)
Quarter: 2019Q3

REPORT INFORMATION
  Report Type: Spontaneous
  Country: BE (occurrence: BE)
  Receive Date: 20190722
  Receipt Date: 20190926
  Transmission Date: 20191004
  Serious: Yes (Disabling, Other)
  Sender: FDA-Public Use
  Company Number: BE-SA-2019SA193050

PATIENT
  Age: 38 Year
  Sex: Male

DRUGS (2)
  1. LEMTRADA [Suspect]
     Active Substance: ALEMTUZUMAB
     Dosage: UNK, UNK, UNK
     Route: 041
     Dates: start: 20160229, end: 20160304
  2. LEMTRADA [Suspect]
     Active Substance: ALEMTUZUMAB
     Indication: MULTIPLE SCLEROSIS
     Dosage: UNK UNK, UNK
     Route: 041
     Dates: start: 20170130, end: 20170201

REACTIONS (7)
  - Wheelchair user [Unknown]
  - Lymphocyte count abnormal [Recovered/Resolved]
  - Protein urine present [Unknown]
  - Platelet count abnormal [Unknown]
  - Pneumonia [Unknown]
  - Pregnancy of partner [Unknown]
  - White blood cell count abnormal [Unknown]

NARRATIVE: CASE EVENT DATE: 201903
